FAERS Safety Report 5363355-X (Version None)
Quarter: 2007Q2

REPORT INFORMATION
  Report Type: 
  Country: None (occurrence: None)
  Receive Date: 20070615
  Receipt Date: 20070531
  Transmission Date: 20071010
  Serious: Yes (Hospitalization, Other)
  Sender: FDA-Public Use
  Company Number: 106151

PATIENT
  Age: 50 Year
  Sex: Male

DRUGS (4)
  1. DAIVOBET [Suspect]
     Indication: PSORIASIS
     Dosage: 4 TO 5 TUBES PER MONTH, TOPICAL
     Route: 061
     Dates: start: 20050101, end: 20060301
  2. SORIATANE [Suspect]
  3. SYNALAR GRAS (FLUOCINOLONE ACETONIDE) [Suspect]
     Dosage: 5 TUBES PER MONTH, TOPICAL
     Route: 061
  4. NERISALIC (NERISALIC) [Suspect]
     Dosage: 2 TUBES PER MONTH ON SCALP, TOPICAL
     Route: 061

REACTIONS (8)
  - ADRENAL INSUFFICIENCY [None]
  - CUSHING'S SYNDROME [None]
  - CYTOLYTIC HEPATITIS [None]
  - DIABETES MELLITUS NON-INSULIN-DEPENDENT [None]
  - DRUG ABUSER [None]
  - GUTTATE PSORIASIS [None]
  - INCORRECT DRUG ADMINISTRATION DURATION [None]
  - SKIN ATROPHY [None]
